FAERS Safety Report 17017162 (Version 1)
Quarter: 2019Q4

REPORT INFORMATION
  Report Type: Spontaneous
  Country: HK (occurrence: HK)
  Receive Date: 20191111
  Receipt Date: 20191111
  Transmission Date: 20200122
  Serious: Yes (Hospitalization, Other)
  Sender: FDA-Public Use
  Company Number: HK-ENDO PHARMACEUTICALS INC-2019-109501

PATIENT

DRUGS (1)
  1. KETALAR [Suspect]
     Active Substance: KETAMINE HYDROCHLORIDE
     Indication: SUBSTANCE USE
     Dosage: INHALED AT LEAST TWICE PER MONTH, UNKNOWN, UNKNOWN
     Route: 050

REACTIONS (3)
  - Drug abuse [Unknown]
  - Ureteric obstruction [Unknown]
  - Biliary tract disorder [Unknown]
